FAERS Safety Report 23274123 (Version 1)
Quarter: 2023Q4

REPORT INFORMATION
  Report Type: Spontaneous
  Country: US (occurrence: US)
  Receive Date: 20231208
  Receipt Date: 20231208
  Transmission Date: 20240109
  Serious: Yes (Hospitalization, Other)
  Sender: FDA-Public Use
  Company Number: US-AUROBINDO-AUR-APL-2023-076280

PATIENT
  Age: 28 Year
  Sex: Female

DRUGS (3)
  1. GEMFIBROZIL [Suspect]
     Active Substance: GEMFIBROZIL
     Indication: Hypertriglyceridaemia
     Dosage: UNK
     Route: 065
  2. LOVAZA [Suspect]
     Active Substance: OMEGA-3-ACID ETHYL ESTERS
     Indication: Hypertriglyceridaemia
     Dosage: UNK
     Route: 065
  3. INSULIN NOS [Suspect]
     Active Substance: INSULIN NOS
     Indication: Hypertriglyceridaemia
     Dosage: UNK
     Route: 065

REACTIONS (2)
  - Drug ineffective [Unknown]
  - Exposure during pregnancy [Unknown]
